FAERS Safety Report 9625292 (Version 3)
Quarter: 2013Q4

REPORT INFORMATION
  Report Type: Spontaneous
  Country: US (occurrence: US)
  Receive Date: 20131016
  Receipt Date: 20131120
  Transmission Date: 20140711
  Serious: No
  Sender: FDA-Public Use
  Company Number: US-PFIZER INC-2013293453

PATIENT
  Age: 35 Year
  Sex: Female
  Weight: 68.03 kg

DRUGS (2)
  1. ADVIL [Suspect]
     Indication: HEADACHE
     Dosage: UNK, AS NEEDED
     Dates: start: 201309
  2. ADVIL [Suspect]
     Dosage: UNK

REACTIONS (3)
  - Dyspepsia [Recovered/Resolved]
  - Foreign body [Recovered/Resolved]
  - Burning sensation [Unknown]
